FAERS Safety Report 8719062 (Version 2)
Quarter: 2012Q4

REPORT INFORMATION
  Report Type: 
  Country: US (occurrence: US)
  Receive Date: 20120813
  Receipt Date: 20121026
  Transmission Date: 20130627
  Serious: Yes (Other)
  Sender: FDA-Public Use
  Company Number: US-AMGEN-USASP2012049953

PATIENT
  Age: 84 Year
  Sex: Female
  Weight: 46.26 kg

DRUGS (3)
  1. ARANESP [Suspect]
     Indication: ANAEMIA
     Dosage: 300 mug, q2wk
     Route: 058
     Dates: start: 20120202
  2. REVLIMID [Suspect]
     Indication: MYELODYSPLASTIC SYNDROME
     Dosage: 5 mg, qd
     Route: 048
     Dates: start: 20120411
  3. VIDAZA [Concomitant]

REACTIONS (3)
  - Diarrhoea [Unknown]
  - Fatigue [Unknown]
  - Weight decreased [Unknown]
